FAERS Safety Report 7589867-6 (Version None)
Quarter: 2011Q3

REPORT INFORMATION
  Report Type: 
  Country: None (occurrence: None)
  Receive Date: 20110705
  Receipt Date: 20110620
  Transmission Date: 20111222
  Serious: Yes (Life-Threatening, Hospitalization, Congenital Anomaly)
  Sender: FDA-Public Use
  Company Number: ES-MERCK-1008USA02742B1

PATIENT
  Age: 35 Week
  Weight: 2 kg

DRUGS (1)
  1. PRINIVIL [Suspect]
     Indication: HYPERTENSION
     Route: 064

REACTIONS (9)
  - PREMATURE BABY [None]
  - MATERNAL EXPOSURE DURING PREGNANCY [None]
  - FOETAL DISTRESS SYNDROME [None]
  - NEONATAL HYPOTENSION [None]
  - MATERNAL DRUGS AFFECTING FOETUS [None]
  - FOETAL GROWTH RESTRICTION [None]
  - BONE FORMATION DECREASED [None]
  - RENAL APLASIA [None]
  - RENAL FAILURE ACUTE [None]
